FAERS Safety Report 12775334 (Version 1)
Quarter: 2016Q3

REPORT INFORMATION
  Report Type: Spontaneous
  Country: US (occurrence: US)
  Receive Date: 20160922
  Receipt Date: 20160922
  Transmission Date: 20161109
  Serious: Yes (Other)
  Sender: FDA-Public Use
  Company Number: None

PATIENT
  Age: 71 Year
  Sex: Male
  Weight: 103.5 kg

DRUGS (16)
  1. LOSARGON POTASSIUM [Concomitant]
  2. DOFETILIDE 250 MCG MAYNE PHARMA [Suspect]
     Active Substance: DOFETILIDE
     Indication: ATRIAL FIBRILLATION
     Route: 048
     Dates: start: 20160720, end: 20160921
  3. LOVASTATIN. [Concomitant]
     Active Substance: LOVASTATIN
  4. ALFUZOSIN [Concomitant]
     Active Substance: ALFUZOSIN
  5. CIALIS [Concomitant]
     Active Substance: TADALAFIL
  6. MAGNESIUM [Concomitant]
     Active Substance: MAGNESIUM
  7. PRADAXA [Concomitant]
     Active Substance: DABIGATRAN ETEXILATE MESYLATE
  8. ALLOPURINAL [Concomitant]
  9. TRILIPIX [Concomitant]
     Active Substance: FENOFIBRIC ACID
  10. TIKOSYN [Concomitant]
     Active Substance: DOFETILIDE
  11. VITAMIN D [Concomitant]
     Active Substance: CHOLECALCIFEROL
  12. FINASTERIDE. [Concomitant]
     Active Substance: FINASTERIDE
  13. SYNTHROID [Concomitant]
     Active Substance: LEVOTHYROXINE SODIUM
  14. TOPROL XL [Concomitant]
     Active Substance: METOPROLOL SUCCINATE
  15. FAMOTIDINE. [Concomitant]
     Active Substance: FAMOTIDINE
  16. GLUCOSAMINE/CHONDROITIN /08437701/ [Concomitant]
     Active Substance: CHONDROITIN SULFATE (BOVINE)\GLUCOSAMINE SULFATE

REACTIONS (2)
  - Atrial fibrillation [None]
  - Product substitution issue [None]

NARRATIVE: CASE EVENT DATE: 20160921
